FAERS Safety Report 6292929-7 (Version None)
Quarter: 2009Q3

REPORT INFORMATION
  Report Type: 
  Country: None (occurrence: None)
  Receive Date: 20090729
  Receipt Date: 20090626
  Transmission Date: 20100115
  Serious: Yes (Disabling)
  Sender: FDA-Public Use
  Company Number: DK-GUERBET-20090014

PATIENT
  Sex: Female

DRUGS (1)
  1. UNSPECIFIED PARAMAGNETIC CONTRAST MEDIA: GADOLINIUM [Suspect]
     Indication: SCAN WITH CONTRAST
     Dosage: UNSPECIFIED INTERVAL INTRAVENOUS (NOT OTHERWISE SPECIFIED)
     Route: 042
     Dates: start: 20010718, end: 20010719

REACTIONS (4)
  - ABASIA [None]
  - NEPHROGENIC SYSTEMIC FIBROSIS [None]
  - WALKING AID USER [None]
  - WHEELCHAIR USER [None]
